FAERS Safety Report 4601166-0 (Version None)
Quarter: 2005Q1

REPORT INFORMATION
  Report Type: 
  Country: None (occurrence: None)
  Receive Date: 20050308
  Receipt Date: 20030310
  Transmission Date: 20050727
  Serious: Yes (Death, Hospitalization, Other)
  Sender: FDA-Public Use
  Company Number: 200312251US

PATIENT
  Sex: Female
  Weight: 46.8 kg

DRUGS (51)
  1. ARAVA [Suspect]
     Indication: JUVENILE ARTHRITIS
     Dates: start: 20000501, end: 20020201
  2. PROTONIX [Suspect]
     Dosage: DOSE: UNKNOWN
  3. METHOTREXATE [Suspect]
     Dosage: DOSE: UNKNOWN
     Dates: start: 20010801
  4. IMDUR [Concomitant]
     Dosage: DOSE: UNKNOWN
  5. OXYCONTIN [Concomitant]
  6. OXYCODONE HCL [Concomitant]
  7. PEPCID [Concomitant]
     Route: 048
  8. INDOCIN [Concomitant]
  9. PREDNISONE [Concomitant]
  10. K-DUR 10 [Concomitant]
  11. ACETAMINOPHEN [Concomitant]
  12. DIFLUCAN [Concomitant]
     Route: 042
  13. METHYLPREDNISOLONE [Concomitant]
     Route: 042
  14. PREVACID [Concomitant]
  15. INDOMETHACIN [Concomitant]
     Route: 048
  16. FOLIC ACID [Concomitant]
     Route: 048
  17. FOSAMAX [Concomitant]
     Route: 048
  18. NIFEREX [Concomitant]
     Route: 048
  19. OSCAL [Concomitant]
  20. MULTIVITAMINS, PLAIN [Concomitant]
     Dosage: DOSE: UNK
  21. PLAQUENIL [Concomitant]
     Dosage: DOSE: UNK
  22. GOLD [Concomitant]
     Dosage: DOSE: UNK
  23. CYCLOSPORINE [Concomitant]
     Dosage: DOSE: UNK
  24. ENBREL [Concomitant]
     Dosage: DOSE: UNK
  25. IMURAN [Concomitant]
     Dosage: DOSE: UNK
  26. LASIX [Concomitant]
  27. ASACOL [Concomitant]
     Route: 048
  28. REMICADE [Concomitant]
     Dosage: DOSE: UNKNOWN
  29. PHENERGAN [Concomitant]
     Dosage: DOSE: UNKNOWN
  30. MAGNESIUM [Concomitant]
     Dosage: DOSE: UNKNOWN
  31. ZANTAC [Concomitant]
     Dosage: DOSE: UNKNOWN
  32. COZAAR [Concomitant]
     Dosage: DOSE: UNKNOWN
  33. CELEBREX [Concomitant]
  34. LOPERAMIDE HCL [Concomitant]
     Route: 048
  35. CLOTRIMAZOLE [Concomitant]
     Route: 048
  36. DAPSONE [Concomitant]
  37. GENTAMYCIN SULFATE [Concomitant]
     Dosage: DOSE: UNKNOWN
  38. METOPROLOL [Concomitant]
  39. DURAGESIC-100 [Concomitant]
     Dosage: DOSE: UNKNOWN
  40. ROXICODONE [Concomitant]
  41. AMITRIPTYLINE HCL [Concomitant]
  42. COZAAR [Concomitant]
     Dosage: DOSE: UNKNOWN
  43. NEXIUM [Concomitant]
  44. FOLIC ACID [Concomitant]
     Dosage: DOSE: UNKNOWN
  45. CITRACAL [Concomitant]
     Dosage: DOSE: UNKNOWN
  46. CELEXA [Concomitant]
  47. CLONAZEPAM [Concomitant]
  48. FUROSEMIDE [Concomitant]
  49. NEURONTIN [Concomitant]
  50. CIPROFLOXACIN HCL [Concomitant]
  51. MIACALCIN [Concomitant]

REACTIONS (14)
  - ANAEMIA [None]
  - CARDIAC FAILURE [None]
  - COLITIS [None]
  - CONDITION AGGRAVATED [None]
  - ELECTROLYTE IMBALANCE [None]
  - HEPATIC FAILURE [None]
  - HYPERTENSION [None]
  - MALNUTRITION [None]
  - NAUSEA [None]
  - PLATELET COUNT INCREASED [None]
  - PNEUMONIA [None]
  - SKIN REACTION [None]
  - VOMITING [None]
  - WHITE BLOOD CELL COUNT INCREASED [None]
